FAERS Safety Report 18305900 (Version 1)
Quarter: 2020Q3

REPORT INFORMATION
  Report Type: Spontaneous
  Country: US (occurrence: US)
  Receive Date: 20200923
  Receipt Date: 20200923
  Transmission Date: 20201103
  Serious: No
  Sender: FDA-Public Use
  Company Number: None

PATIENT
  Age: 29 Year
  Sex: Female
  Weight: 111.58 kg

DRUGS (3)
  1. HEART BURN MEDICATION [Concomitant]
  2. PARAGARD T 380A [Suspect]
     Active Substance: COPPER
     Dates: start: 20151002, end: 20200923
  3. LOW DOSE ANTIDEPRESSANT [Concomitant]

REACTIONS (2)
  - Device breakage [None]
  - Complication of device removal [None]

NARRATIVE: CASE EVENT DATE: 20200923
